FAERS Safety Report 20416237 (Version 1)
Quarter: 2022Q1

REPORT INFORMATION
  Report Type: Spontaneous
  Country: US (occurrence: None)
  Receive Date: 20220201
  Receipt Date: 20220201
  Transmission Date: 20220423
  Serious: No
  Sender: FDA-Public Use
  Company Number: None

PATIENT
  Age: 60 Year
  Sex: Female
  Weight: 74.84 kg

DRUGS (1)
  1. RISEDRONATE SODIUM [Suspect]
     Active Substance: RISEDRONATE SODIUM
     Indication: Osteoporosis
     Dosage: FREQUENCY : MONTHLY;?
     Route: 048
     Dates: start: 20200618, end: 20201017

REACTIONS (3)
  - Drug ineffective [None]
  - Product availability issue [None]
  - Product substitution issue [None]
